FAERS Safety Report 8485845-3 (Version None)
Quarter: 2012Q2

REPORT INFORMATION
  Report Type: 
  Country: None (occurrence: None)
  Receive Date: 20120626
  Receipt Date: 20120615
  Transmission Date: 20120825
  Serious: Yes (Other)
  Sender: FDA-Public Use
  Company Number: ADR-2012-01026

PATIENT
  Age: 17 Year
  Sex: Male

DRUGS (1)
  1. BACLOFEN [Suspect]
     Indication: HEAD INJURY

REACTIONS (3)
  - POST PROCEDURAL COMPLICATION [None]
  - ILEUS [None]
  - IMPLANT SITE HAEMATOMA [None]
